FAERS Safety Report 23546428 (Version 6)
Quarter: 2025Q1

REPORT INFORMATION
  Report Type: Spontaneous
  Country: US (occurrence: US)
  Receive Date: 20240220
  Receipt Date: 20250226
  Transmission Date: 20250408
  Serious: Yes (Hospitalization, Other)
  Sender: SANOFI AVENTIS
  Company Number: US-SA-SAC20240216000123

PATIENT
  Age: 60 Year
  Sex: Female
  Weight: 132.73 kg

DRUGS (33)
  1. DUPIXENT [Suspect]
     Active Substance: DUPILUMAB
     Indication: Nasal polyps
     Dosage: 300 MG, QOW
     Route: 058
  2. AMBRISENTAN [Concomitant]
     Active Substance: AMBRISENTAN
  3. IRON [Concomitant]
     Active Substance: IRON
  4. OXYGEN [Concomitant]
     Active Substance: OXYGEN
  5. UPTRAVI [Concomitant]
     Active Substance: SELEXIPAG
  6. REVATIO [Concomitant]
     Active Substance: SILDENAFIL CITRATE
  7. FUROSEMIDE [Concomitant]
     Active Substance: FUROSEMIDE
  8. IMODIUM [Concomitant]
     Active Substance: LOPERAMIDE HYDROCHLORIDE
  9. TYLENOL [Concomitant]
     Active Substance: ACETAMINOPHEN
  10. TIZANIDINE HYDROCHLORIDE [Concomitant]
     Active Substance: TIZANIDINE HYDROCHLORIDE
  11. LEVOTHYROXINE SODIUM [Concomitant]
     Active Substance: LEVOTHYROXINE SODIUM
  12. LORAZEPAM [Concomitant]
     Active Substance: LORAZEPAM
  13. ENTRESTO [Concomitant]
     Active Substance: SACUBITRIL\VALSARTAN
  14. CLOBETASOL [Concomitant]
     Active Substance: CLOBETASOL
  15. JARDIANCE [Concomitant]
     Active Substance: EMPAGLIFLOZIN
  16. SPIRONOLACTONE [Concomitant]
     Active Substance: SPIRONOLACTONE
  17. VITAMIN D3 [Concomitant]
     Active Substance: CHOLECALCIFEROL
  18. BACLOFEN [Concomitant]
     Active Substance: BACLOFEN
  19. CARDIZEM CD [Concomitant]
     Active Substance: DILTIAZEM HYDROCHLORIDE
  20. ZETIA [Concomitant]
     Active Substance: EZETIMIBE
  21. TYVASO [Concomitant]
     Active Substance: TREPROSTINIL
  22. EZETIMIBE [Concomitant]
     Active Substance: EZETIMIBE
  23. SILDENAFIL CITRATE [Concomitant]
     Active Substance: SILDENAFIL CITRATE
  24. ENTRESTO [Concomitant]
     Active Substance: SACUBITRIL\VALSARTAN
  25. PANTOPRAZOLE SODIUM [Concomitant]
     Active Substance: PANTOPRAZOLE SODIUM
  26. WINREVAIR [Concomitant]
     Active Substance: SOTATERCEPT-CSRK
  27. PRALUENT [Concomitant]
     Active Substance: ALIROCUMAB
  28. SYNTHROID [Concomitant]
     Active Substance: LEVOTHYROXINE SODIUM
  29. BUPROPION [Concomitant]
     Active Substance: BUPROPION
  30. DILTIAZEM [Concomitant]
     Active Substance: DILTIAZEM
  31. CITALOPRAM HYDROBROMIDE [Concomitant]
     Active Substance: CITALOPRAM HYDROBROMIDE
  32. LIOTHYRONINE SODIUM [Concomitant]
     Active Substance: LIOTHYRONINE SODIUM
  33. MOUNJARO [Concomitant]
     Active Substance: TIRZEPATIDE

REACTIONS (4)
  - Meningitis [Unknown]
  - Swelling [Unknown]
  - Cough [Not Recovered/Not Resolved]
  - Influenza [Not Recovered/Not Resolved]

NARRATIVE: CASE EVENT DATE: 20241231
